FAERS Safety Report 17241316 (Version 1)
Quarter: 2020Q1

REPORT INFORMATION
  Report Type: Spontaneous
  Country: US (occurrence: US)
  Receive Date: 20200106
  Receipt Date: 20200106
  Transmission Date: 20200409
  Serious: Yes (Death)
  Sender: FDA-Public Use
  Company Number: None

PATIENT
  Sex: Male

DRUGS (12)
  1. FAMOTIDINE 20MG [Concomitant]
     Active Substance: FAMOTIDINE
  2. MONTELUKAST [Concomitant]
     Active Substance: MONTELUKAST SODIUM
  3. ASPIRIN 81MG [Concomitant]
     Active Substance: ASPIRIN
  4. ROSUVASTATIN 5MG [Concomitant]
     Active Substance: ROSUVASTATIN
  5. MYFORTIC [Suspect]
     Active Substance: MYCOPHENOLATE SODIUM
  6. SODIUM BICARBONATE 10 GM [Concomitant]
  7. VIRT-CAPS [Concomitant]
     Active Substance: ASCORBIC ACID\BIOTIN\CALCIUM PANTOTHENATE\CYANOCOBALAMIN\FOLIC ACID\NIACINAMIDE\PYRIDOXINE HYDROCHLORIDE\RIBOFLAVIN\THIAMINE MONONITRATE
  8. NEUPOGEN [Concomitant]
     Active Substance: FILGRASTIM
  9. NIFEDIPINE 30MG [Concomitant]
     Active Substance: NIFEDIPINE
  10. PREDNISONE 10MG [Concomitant]
     Active Substance: PREDNISONE
  11. TACROLIMUS 1MG [Concomitant]
     Active Substance: TACROLIMUS
  12. TAMSULOSIN 0.4MG [Concomitant]
     Active Substance: TAMSULOSIN

REACTIONS (2)
  - Death [None]
  - Transplant [None]
